FAERS Safety Report 25768699 (Version 1)
Quarter: 2025Q3

REPORT INFORMATION
  Report Type: Spontaneous
  Country: US (occurrence: US)
  Receive Date: 20250905
  Receipt Date: 20250905
  Transmission Date: 20251021
  Serious: Yes (Hospitalization)
  Sender: DR REDDYS
  Company Number: US-MLMSERVICE-20250820-PI620214-00139-1

PATIENT
  Age: 48 Year
  Sex: Female

DRUGS (1)
  1. ETHINYL ESTRADIOL\LEVONORGESTREL [Suspect]
     Active Substance: ETHINYL ESTRADIOL\LEVONORGESTREL
     Indication: Oral contraception
     Route: 048

REACTIONS (1)
  - Mesenteric vein thrombosis [Recovered/Resolved]
